FAERS Safety Report 5200837-5 (Version None)
Quarter: 2007Q1

REPORT INFORMATION
  Report Type: 
  Country: None (occurrence: None)
  Receive Date: 20070108
  Receipt Date: 20070102
  Transmission Date: 20070707
  Serious: Yes (Other)
  Sender: FDA-Public Use
  Company Number: US-JNJFOC-20070100495

PATIENT
  Sex: Female
  Weight: 113.4 kg

DRUGS (13)
  1. REMICADE [Suspect]
     Indication: PSORIATIC ARTHROPATHY
     Route: 042
  2. REMICADE [Suspect]
     Indication: RHEUMATOID ARTHRITIS
     Route: 042
  3. PREVACID [Concomitant]
  4. MTX [Concomitant]
     Indication: RHEUMATOID ARTHRITIS
  5. FOLIC ACID [Concomitant]
  6. BYETTA [Concomitant]
     Indication: DIABETES MELLITUS
  7. METFORMIN HCL [Concomitant]
  8. CALCIUM [Concomitant]
  9. TRAZODONE HCL [Concomitant]
  10. ADVICOR [Concomitant]
  11. PROMETRIUM [Concomitant]
  12. LYRICA [Concomitant]
  13. AMBIEN [Concomitant]

REACTIONS (1)
  - AMNESIA [None]
